FAERS Safety Report 15480543 (Version 3)
Quarter: 2018Q4

REPORT INFORMATION
  Report Type: Spontaneous
  Country: RO (occurrence: RO)
  Receive Date: 20181010
  Receipt Date: 20181102
  Transmission Date: 20190205
  Serious: Yes (Life-Threatening, Hospitalization, Other)
  Sender: FDA-Public Use
  Company Number: RO-AUROBINDO-AUR-APL-2018-049260

PATIENT
  Age: 24 Year
  Sex: Male

DRUGS (4)
  1. AMOXICILLIN+CLAVULANIC ACID [Suspect]
     Active Substance: AMOXICILLIN\CLAVULANIC ACID
     Indication: TOOTH ABSCESS
  2. PARACETAMOL [Suspect]
     Active Substance: ACETAMINOPHEN
     Indication: TOOTH ABSCESS
     Dosage: UNK
     Route: 065
  3. AMOXICILLIN+CLAVULANIC ACID [Suspect]
     Active Substance: AMOXICILLIN\CLAVULANIC ACID
     Indication: ANTIBIOTIC THERAPY
     Dosage: UNK
     Route: 065
  4. IBUPROFEN. [Suspect]
     Active Substance: IBUPROFEN
     Indication: TOOTH ABSCESS
     Dosage: UNK
     Route: 065

REACTIONS (9)
  - Thrombocytopenia [Recovering/Resolving]
  - Blood pressure decreased [Unknown]
  - Escherichia infection [Recovered/Resolved]
  - Toxic epidermal necrolysis [Recovered/Resolved]
  - Staphylococcal infection [Recovered/Resolved]
  - Hyperglycaemia [Recovering/Resolving]
  - Feeding disorder [Unknown]
  - Hepatomegaly [Unknown]
  - Sepsis [Recovered/Resolved]
